FAERS Safety Report 7207489-3 (Version None)
Quarter: 2011Q1

REPORT INFORMATION
  Report Type: 
  Country: None (occurrence: None)
  Receive Date: 20110103
  Receipt Date: 20101222
  Transmission Date: 20110831
  Serious: Yes (Hospitalization)
  Sender: FDA-Public Use
  Company Number: BR-ASTRAZENECA-2010SE60638

PATIENT
  Age: 36 Year

DRUGS (3)
  1. SERTRALINE HYDROCHLORIDE [Concomitant]
     Route: 048
  2. SEROQUEL [Suspect]
     Route: 048
  3. LITHIUM CARBONATE [Concomitant]
     Route: 048

REACTIONS (1)
  - DEPRESSED LEVEL OF CONSCIOUSNESS [None]
